FAERS Safety Report 24237758 (Version 1)
Quarter: 2024Q3

REPORT INFORMATION
  Report Type: Spontaneous
  Country: US (occurrence: None)
  Receive Date: 20240821
  Receipt Date: 20240821
  Transmission Date: 20241016
  Serious: Yes (unspecified)
  Sender: Public
  Company Number: None

PATIENT
  Age: 46 Year
  Sex: Female
  Weight: 65.25 kg

DRUGS (9)
  1. DUPIXENT [Suspect]
     Active Substance: DUPILUMAB
     Indication: Eczema
     Dates: start: 20240820
  2. BUSPAR [Concomitant]
     Active Substance: BUSPIRONE HYDROCHLORIDE
  3. LEVOTHYROXINE [Concomitant]
  4. ROSUVASTATIN [Concomitant]
  5. FLUOXETINE [Concomitant]
  6. Vitamin D [Concomitant]
  7. BIOTIN [Concomitant]
  8. Zyrtec [Concomitant]
  9. COENZYME Q10 [Concomitant]
     Active Substance: DIETARY SUPPLEMENT\UBIDECARENONE

REACTIONS (3)
  - Paraesthesia [None]
  - Hypoaesthesia [None]
  - Arthralgia [None]

NARRATIVE: CASE EVENT DATE: 20240821
